FAERS Safety Report 8170579-5 (Version None)
Quarter: 2012Q1

REPORT INFORMATION
  Report Type: 
  Country: None (occurrence: None)
  Receive Date: 20120228
  Receipt Date: 20120222
  Transmission Date: 20120608
  Serious: Yes (Life-Threatening)
  Sender: FDA-Public Use
  Company Number: FR-ROCHE-1042540

PATIENT
  Age: 61 Year
  Sex: Female

DRUGS (9)
  1. SOLU-MEDROL [Concomitant]
  2. MABTHERA [Suspect]
     Indication: PRODUCT USED FOR UNKNOWN INDICATION
     Route: 042
     Dates: start: 20120109, end: 20120109
  3. CALCIUM CARBONATE [Concomitant]
  4. PRIVIGEN [Concomitant]
  5. NEXIUM [Concomitant]
  6. PROGRAF [Concomitant]
  7. ASPIRIN [Concomitant]
     Route: 048
  8. THYMOGLOBULIN [Concomitant]
  9. MYCOPHENOLATE MOFETIL (CELLCEPT) [Concomitant]

REACTIONS (1)
  - RESPIRATORY DISTRESS [None]
